FAERS Safety Report 8761323 (Version 1)
Quarter: 2012Q4

REPORT INFORMATION
  Report Type: 
  Country: US (occurrence: US)
  Receive Date: 20120830
  Receipt Date: 20120830
  Transmission Date: 20130627
  Serious: Yes (Hospitalization, Other)
  Sender: FDA-Public Use
  Company Number: US-009507513-1005USA03723

PATIENT

DRUGS (6)
  1. FOSAMAX [Suspect]
     Indication: OSTEOPOROSIS
     Dosage: 70 mg, QW
     Route: 048
     Dates: start: 20080706, end: 200907
  2. FOSAMAX [Suspect]
     Indication: OSTEOPOROSIS
     Dosage: 70 mg, QW
     Route: 048
     Dates: start: 20011119, end: 20080705
  3. CALCIUM (UNSPECIFIED) [Concomitant]
     Indication: OSTEOPOROSIS
     Dosage: 250 mg, qid
     Route: 048
  4. SINGULAIR [Concomitant]
     Indication: ASTHMA
  5. ACTONEL [Concomitant]
     Indication: OSTEOPOROSIS
     Dosage: 35 mg, qw
     Route: 048
     Dates: start: 20021106
  6. ZESTRIL [Concomitant]
     Indication: HYPERTENSION
     Dosage: 10 mg, UNK

REACTIONS (38)
  - Femur fracture [Unknown]
  - Lower limb fracture [Unknown]
  - Oophorectomy [Recovered/Resolved]
  - Menorrhagia [Recovered/Resolved]
  - Radius fracture [Recovered/Resolved]
  - Femur fracture [Recovered/Resolved]
  - Limb discomfort [Unknown]
  - Hypercholesterolaemia [Unknown]
  - Hypothyroidism [Unknown]
  - Acute sinusitis [Recovered/Resolved]
  - Snoring [Unknown]
  - Tendonitis [Unknown]
  - Low turnover osteopathy [Unknown]
  - Iliotibial band syndrome [Unknown]
  - Congenital knee deformity [Unknown]
  - Rheumatoid arthritis [Unknown]
  - Dyspnoea [Recovering/Resolving]
  - Palpitations [Recovering/Resolving]
  - Bronchitis [Unknown]
  - Foot fracture [Unknown]
  - Bursitis [Unknown]
  - Fall [Unknown]
  - Goitre [Unknown]
  - Breast cyst [Unknown]
  - Neutropenia [Unknown]
  - Anaemia [Unknown]
  - Laceration [Unknown]
  - Carotid bruit [Unknown]
  - Dyspnoea [Unknown]
  - Chest pain [Unknown]
  - Rhinorrhoea [Unknown]
  - Adverse drug reaction [Unknown]
  - Tympanic membrane perforation [Unknown]
  - Bursitis [Unknown]
  - Migraine [Unknown]
  - Back pain [Unknown]
  - Pain in extremity [Unknown]
  - Arthralgia [Unknown]
